FAERS Safety Report 8451308-4 (Version None)
Quarter: 2012Q2

REPORT INFORMATION
  Report Type: 
  Country: None (occurrence: None)
  Receive Date: 20120620
  Receipt Date: 20120426
  Transmission Date: 20120825
  Serious: No
  Sender: FDA-Public Use
  Company Number: US-VERTEX PHARMACEUTICALS INC.-AE-2012-002538

PATIENT
  Sex: Female
  Weight: 83.99 kg

DRUGS (6)
  1. BENADRYL [Concomitant]
     Route: 048
  2. INCIVEK [Suspect]
     Indication: HEPATITIS C
     Route: 048
     Dates: start: 20120207
  3. COPEGUS [Concomitant]
     Indication: HEPATITIS C
     Route: 048
     Dates: start: 20120207
  4. SIMPLY SLEEP [Concomitant]
     Route: 048
  5. PEGASYS [Concomitant]
     Indication: HEPATITIS C
     Route: 058
     Dates: start: 20120207
  6. IBUPROFEN (ADVIL) [Concomitant]
     Indication: DISCOMFORT
     Route: 048

REACTIONS (8)
  - VISION BLURRED [None]
  - DYSGEUSIA [None]
  - ANAEMIA [None]
  - VOMITING [None]
  - NAUSEA [None]
  - PARAESTHESIA [None]
  - RASH [None]
  - PAROSMIA [None]
